FAERS Safety Report 6131958-0 (Version None)
Quarter: 2009Q1

REPORT INFORMATION
  Report Type: 
  Country: None (occurrence: None)
  Receive Date: 20090325
  Receipt Date: 20090324
  Transmission Date: 20090719
  Serious: Yes (Other)
  Sender: FDA-Public Use
  Company Number: US-PFIZER INC-2009159471

PATIENT
  Sex: Female
  Weight: 88.889 kg

DRUGS (7)
  1. LYRICA [Suspect]
     Indication: PAIN IN EXTREMITY
     Dosage: 100 MG, 3X/DAY
     Dates: start: 20060101
  2. XANAX [Suspect]
     Indication: PREMEDICATION
     Dosage: FREQUENCY: ONCE;
     Dates: start: 20060101
  3. XANAX [Suspect]
     Indication: TREMOR
  4. XANAX [Suspect]
     Indication: HYPERHIDROSIS
  5. XANAX [Suspect]
  6. VICODIN [Concomitant]
     Dosage: UNK
  7. OXYCONTIN [Concomitant]
     Dosage: UNK

REACTIONS (10)
  - COMPLEX REGIONAL PAIN SYNDROME [None]
  - ERYTHEMA [None]
  - INSOMNIA [None]
  - INTERVERTEBRAL DISC PROTRUSION [None]
  - MENOPAUSE [None]
  - MYALGIA [None]
  - SOMNOLENCE [None]
  - TREMOR [None]
  - WEIGHT INCREASED [None]
  - WHEEZING [None]
